FAERS Safety Report 21291274 (Version 2)
Quarter: 2022Q3

REPORT INFORMATION
  Report Type: Spontaneous
  Country: PL (occurrence: PL)
  Receive Date: 20220903
  Receipt Date: 20220910
  Transmission Date: 20221027
  Serious: Yes (Hospitalization)
  Sender: FDA-Public Use
  Company Number: PL-NOVARTISPH-NVSC2022PL197709

PATIENT
  Sex: Female

DRUGS (5)
  1. BROMOCRIPTINE MESYLATE [Suspect]
     Active Substance: BROMOCRIPTINE MESYLATE
     Indication: Lactation inhibition therapy
     Dosage: UNK
     Route: 048
     Dates: start: 20210618
  2. ETHAMSYLATE [Concomitant]
     Active Substance: ETHAMSYLATE
     Indication: Product used for unknown indication
     Dosage: UNK, DRIP
     Route: 042
  3. TRANEXAMIC ACID [Concomitant]
     Active Substance: TRANEXAMIC ACID
     Indication: Product used for unknown indication
     Dosage: UNK, DRIP
     Route: 042
  4. VITAMIN C [Concomitant]
     Active Substance: ASCORBIC ACID
     Indication: Product used for unknown indication
     Dosage: UNK, DRIP
     Route: 042
  5. MADINETTE [Concomitant]
     Indication: Contraception
     Dosage: UNK
     Route: 065

REACTIONS (2)
  - Genital haemorrhage [Unknown]
  - Hypothalamo-pituitary disorder [Unknown]
